FAERS Safety Report 15317248 (Version 1)
Quarter: 2018Q3

REPORT INFORMATION
  Report Type: Spontaneous
  Country: US (occurrence: US)
  Receive Date: 20180824
  Receipt Date: 20180824
  Transmission Date: 20181010
  Serious: Yes (Hospitalization, Other)
  Sender: FDA-Public Use
  Company Number: US-NOVOPROD-617418

PATIENT
  Age: 67 Year
  Sex: Female

DRUGS (4)
  1. TRESIBA FLEXTOUCH U200 [Suspect]
     Active Substance: INSULIN DEGLUDEC
     Indication: TYPE 2 DIABETES MELLITUS
     Dosage: 108 U, QD
     Route: 058
     Dates: start: 201807, end: 2018
  2. TRESIBA FLEXTOUCH U200 [Suspect]
     Active Substance: INSULIN DEGLUDEC
     Dosage: 98 U, QD
     Route: 058
     Dates: start: 2018, end: 2018
  3. TRESIBA FLEXTOUCH U200 [Suspect]
     Active Substance: INSULIN DEGLUDEC
     Dosage: 90 U, QD
     Route: 058
     Dates: start: 2018
  4. NOVOLOG [Suspect]
     Active Substance: INSULIN ASPART
     Indication: TYPE 2 DIABETES MELLITUS
     Dosage: 32 U AM, 35 U AFTERNOON AND 35 U AT NIGHT
     Route: 058
     Dates: start: 2017

REACTIONS (3)
  - Blood glucose increased [Recovered/Resolved]
  - Blindness transient [Recovered/Resolved]
  - Blood glucose decreased [Not Recovered/Not Resolved]

NARRATIVE: CASE EVENT DATE: 2018
